FAERS Safety Report 4273087-7 (Version None)
Quarter: 2004Q1

REPORT INFORMATION
  Report Type: 
  Country: None (occurrence: None)
  Receive Date: 20040116
  Receipt Date: 20020614
  Transmission Date: 20041129
  Serious: Yes (Other)
  Sender: FDA-Public Use
  Company Number: US-BRISTOL-MYERS SQUIBB COMPANY-11910619

PATIENT
  Age: 56 Year
  Sex: Female

DRUGS (10)
  1. GATIFLOXACIN [Suspect]
     Dosage: MOST RECENT DOSE PRIOR TO EVENT 11-JAN-2002
     Route: 048
     Dates: start: 20010925, end: 20020528
  2. ATORVASTATIN [Suspect]
     Dosage: MOST RECENT DOSE PRIOR TO EVENT 11-JAN-2002
     Route: 048
     Dates: start: 20010905
  3. ATENOLOL [Concomitant]
     Route: 048
  4. TRAZODONE HCL [Concomitant]
     Route: 048
  5. ZOLOFT [Concomitant]
     Route: 048
  6. PREMARIN [Concomitant]
     Route: 048
  7. ASPIRIN [Concomitant]
     Route: 048
  8. GLYBURIDE [Concomitant]
     Route: 048
     Dates: start: 20020401
  9. NEXIUM [Concomitant]
     Route: 048
     Dates: start: 20020401
  10. NTG SL [Concomitant]
     Route: 060
     Dates: start: 20020401

REACTIONS (1)
  - HYPERGLYCAEMIA [None]
